FAERS Safety Report 8545981-X (Version None)
Quarter: 2012Q3

REPORT INFORMATION
  Report Type: 
  Country: None (occurrence: None)
  Receive Date: 20120727
  Receipt Date: 20111130
  Transmission Date: 20120928
  Serious: No
  Sender: FDA-Public Use
  Company Number: US-ASTRAZENECA-2011SE72437

PATIENT
  Age: 60 Year
  Sex: Female
  Weight: 68 kg

DRUGS (6)
  1. SEROQUEL [Suspect]
     Indication: BIPOLAR DISORDER
     Route: 048
  2. DEPAKOTE [Concomitant]
  3. CLONAZEPAM [Concomitant]
  4. RESTRIL [Concomitant]
  5. SEROQUEL [Suspect]
     Indication: PERSONALITY DISORDER
     Route: 048
  6. MARIJUANA [Concomitant]

REACTIONS (6)
  - POOR QUALITY SLEEP [None]
  - DRUG DOSE OMISSION [None]
  - OFF LABEL USE [None]
  - INSOMNIA [None]
  - DEPRESSED MOOD [None]
  - BRADYPHRENIA [None]
